FAERS Safety Report 4675668-5 (Version None)
Quarter: 2005Q2

REPORT INFORMATION
  Report Type: 
  Country: None (occurrence: None)
  Receive Date: 20050527
  Receipt Date: 20050201
  Transmission Date: 20051028
  Serious: Yes (Hospitalization)
  Sender: FDA-Public Use
  Company Number: PHNU2005DE00810

PATIENT
  Sex: Male

DRUGS (4)
  1. SANDOSTATIN LAR [Suspect]
     Indication: CARCINOID TUMOUR OF THE DUODENUM
     Route: 030
     Dates: start: 20040101
  2. ROFERON-A /SCH/ [Concomitant]
     Dosage: UNK, QW3
     Dates: start: 19990101
  3. FUROSEMIDE [Concomitant]
  4. HYDROCHLORZIDE [Concomitant]

REACTIONS (3)
  - INJECTION SITE ABSCESS [None]
  - INJECTION SITE PAIN [None]
  - LOCAL REACTION [None]
